FAERS Safety Report 4649571-0 (Version None)
Quarter: 2005Q2

REPORT INFORMATION
  Report Type: 
  Country: None (occurrence: None)
  Receive Date: 20050502
  Receipt Date: 20050304
  Transmission Date: 20051028
  Serious: Yes (Hospitalization, Disabling)
  Sender: FDA-Public Use
  Company Number: PHFR2005GB01106

PATIENT
  Age: 45 Year
  Sex: Male

DRUGS (3)
  1. LAMISIL [Suspect]
     Indication: NAIL TINEA
     Dosage: 250MG/DAY
     Route: 048
  2. ATENOLOL [Concomitant]
     Dosage: 25MG/DAY
  3. AMLODIPINE [Concomitant]
     Dosage: 10MG/DAY
     Route: 048

REACTIONS (4)
  - ABNORMAL BEHAVIOUR [None]
  - DELUSION [None]
  - PARANOIA [None]
  - PSYCHOTIC DISORDER [None]
